FAERS Safety Report 7622959-1 (Version None)
Quarter: 2011Q3

REPORT INFORMATION
  Report Type: 
  Country: None (occurrence: None)
  Receive Date: 20110720
  Receipt Date: 20110712
  Transmission Date: 20111222
  Serious: Yes (Hospitalization, Other)
  Sender: FDA-Public Use
  Company Number: TN-SANOFI-AVENTIS-200916089EU

PATIENT
  Age: 24 Year
  Sex: Female

DRUGS (4)
  1. SPIRONOLACTONE [Concomitant]
     Indication: GLOMERULONEPHRITIS
  2. FUROSEMIDE [Suspect]
     Indication: GLOMERULONEPHRITIS
     Route: 065
  3. PREDNISONE [Concomitant]
     Indication: GLOMERULONEPHRITIS
  4. HYDROXYCHLOROQUINE SULFATE [Concomitant]
     Indication: GLOMERULONEPHRITIS

REACTIONS (5)
  - DERMATITIS BULLOUS [None]
  - ORAL MUCOSA EROSION [None]
  - GENITAL EROSION [None]
  - TOXIC EPIDERMAL NECROLYSIS [None]
  - RASH MACULO-PAPULAR [None]
